FAERS Safety Report 7607728-0 (Version None)
Quarter: 2011Q3

REPORT INFORMATION
  Report Type: 
  Country: None (occurrence: None)
  Receive Date: 20110713
  Receipt Date: 20110526
  Transmission Date: 20111222
  Serious: Yes (Death)
  Sender: FDA-Public Use
  Company Number: PHHY2011RO45497

PATIENT
  Sex: Male

DRUGS (3)
  1. TAMSULOSIN HYDROCHLORIDE [Concomitant]
     Dosage: 0.5 MG, UNK
  2. EXFORGE [Suspect]
     Indication: HYPERTENSION
     Dosage: 160 MG VALSARTAN AND 10 ,G AMLODIPINE, DAILY
     Dates: start: 20100929
  3. ENALAPRIL MALEATE [Concomitant]

REACTIONS (1)
  - RECTAL NEOPLASM [None]
